FAERS Safety Report 24322526 (Version 1)
Quarter: 2024Q3

REPORT INFORMATION
  Report Type: Spontaneous
  Country: US (occurrence: US)
  Receive Date: 20240916
  Receipt Date: 20240916
  Transmission Date: 20241016
  Serious: No
  Sender: ALVOGEN
  Company Number: None

PATIENT

DRUGS (1)
  1. DEXTROAMPHET SACCHARAT, AMPHET ASPARTATE, DEXTROAMPHET SULFATE AND AMP [Suspect]
     Active Substance: AMPHETAMINE ASPARTATE\AMPHETAMINE SULFATE\DEXTROAMPHETAMINE SACCHARATE\DEXTROAMPHETAMINE SULFATE
     Indication: Product used for unknown indication
     Dosage: DEXTROAMPHETAMINE-AMPHETAMINE 20MG

REACTIONS (16)
  - Agitation [Unknown]
  - Cold sweat [Unknown]
  - Crying [Unknown]
  - Disturbance in attention [Unknown]
  - Emotional disorder [Unknown]
  - Asthenia [Unknown]
  - Gastrointestinal disorder [Unknown]
  - Headache [Unknown]
  - Impaired work ability [Unknown]
  - Dizziness [Unknown]
  - Nausea [Unknown]
  - Poor quality sleep [Unknown]
  - Dry mouth [Unknown]
  - Drug ineffective [Unknown]
  - Product substitution issue [Unknown]
  - Therapy interrupted [Unknown]
